FAERS Safety Report 5018930-9 (Version None)
Quarter: 2006Q2

REPORT INFORMATION
  Report Type: 
  Country: None (occurrence: None)
  Receive Date: 20060531
  Receipt Date: 20060515
  Transmission Date: 20061013
  Serious: Yes (Other)
  Sender: FDA-Public Use
  Company Number: 9332

PATIENT
  Age: 53 Year
  Sex: Female
  Weight: 54.4316 kg

DRUGS (2)
  1. SEPTOCAINE [Suspect]
     Indication: DENTAL TREATMENT
     Dosage: 2 CARPULES INJECTED
  2. SEPTOCAINE [Suspect]
     Indication: LOCAL ANAESTHESIA
     Dosage: 2 CARPULES INJECTED

REACTIONS (1)
  - PARAESTHESIA ORAL [None]
